FAERS Safety Report 9066861 (Version 5)
Quarter: 2013Q2

REPORT INFORMATION
  Report Type: Spontaneous
  Country: US (occurrence: US)
  Receive Date: 20130214
  Receipt Date: 20130410
  Transmission Date: 20140414
  Serious: Yes (Hospitalization, Other)
  Sender: FDA-Public Use
  Company Number: US-PFIZER INC-2013057490

PATIENT
  Age: 62 Year
  Sex: Female
  Weight: 61.22 kg

DRUGS (13)
  1. LYRICA [Suspect]
     Indication: NEURALGIA
     Dosage: 200 MG, 2X/DAY
     Route: 048
  2. LYRICA [Suspect]
     Dosage: 200 MG, 2X/DAY
     Route: 048
  3. PREMARIN [Suspect]
     Indication: HYSTERECTOMY
     Dosage: 0.625 MG, 1X/DAY
     Route: 048
  4. XALATAN [Suspect]
     Indication: GLAUCOMA
     Dosage: UNK (ONE DROP IN EACH EYE), 1X/DAY
     Route: 047
  5. CYMBALTA [Suspect]
     Indication: DEPRESSION
     Dosage: UNK
  6. LUMIGAN [Concomitant]
     Indication: INTRAOCULAR PRESSURE TEST ABNORMAL
     Dosage: 1 DROP, BOTH EYES AT BEDTIME
     Route: 047
  7. METFORMIN [Concomitant]
     Dosage: UNK
  8. ADVAIR [Concomitant]
     Dosage: UNK
  9. VYTORIN [Concomitant]
     Indication: BLOOD CHOLESTEROL INCREASED
     Dosage: UNK
  10. OYSTER SHELL [Concomitant]
     Indication: VITAMIN SUPPLEMENTATION
     Dosage: UNK
  11. VITAMIN D [Concomitant]
     Dosage: 2000 UNK, UNK
  12. NEXIUM [Concomitant]
     Indication: GASTRIC DISORDER
     Dosage: UNK
  13. PROMETHAZINE [Concomitant]
     Indication: NAUSEA
     Dosage: UNK

REACTIONS (6)
  - Myocardial infarction [Unknown]
  - Thrombosis in device [Unknown]
  - White blood cell count increased [Unknown]
  - Drug dose omission [Unknown]
  - Pain in extremity [Unknown]
  - Muscular weakness [Unknown]
